FAERS Safety Report 13277096 (Version 1)
Quarter: 2017Q1

REPORT INFORMATION
  Report Type: Spontaneous
  Country: US (occurrence: US)
  Receive Date: 20170228
  Receipt Date: 20170228
  Transmission Date: 20170428
  Serious: Yes (Hospitalization, Other)
  Sender: FDA-Public Use
  Company Number: None

PATIENT
  Age: 19 Year
  Sex: Male
  Weight: 72.58 kg

DRUGS (6)
  1. HALOPERIDOL INJECTION [Suspect]
     Active Substance: HALOPERIDOL
     Indication: NAUSEA
     Dosage: 3 TUBES OF 100 MG ONCE A MONTH INJECTION
     Dates: start: 20150318
  2. GEODON [Concomitant]
     Active Substance: ZIPRASIDONE HYDROCHLORIDE\ZIPRASIDONE MESYLATE
  3. MULTIVITAMIN [Concomitant]
     Active Substance: VITAMINS
  4. HALOPERIDOL INJECTION [Suspect]
     Active Substance: HALOPERIDOL
     Indication: SCHIZOPHRENIA
     Dosage: 3 TUBES OF 100 MG ONCE A MONTH INJECTION
     Dates: start: 20150318
  5. HALOPERIDOL INJECTION [Suspect]
     Active Substance: HALOPERIDOL
     Indication: VOMITING
     Dosage: 3 TUBES OF 100 MG ONCE A MONTH INJECTION
     Dates: start: 20150318
  6. LATUDA [Concomitant]
     Active Substance: LURASIDONE HYDROCHLORIDE

REACTIONS (20)
  - Mood altered [None]
  - Dyspnoea [None]
  - Personality change [None]
  - Weight increased [None]
  - Dysphonia [None]
  - Aggression [None]
  - Nausea [None]
  - Tremor [None]
  - Dry throat [None]
  - Disturbance in attention [None]
  - Vomiting [None]
  - Full blood count decreased [None]
  - Dizziness [None]
  - Tongue movement disturbance [None]
  - Choking [None]
  - Asthenia [None]
  - Memory impairment [None]
  - Anger [None]
  - Irritability [None]
  - Speech disorder [None]

NARRATIVE: CASE EVENT DATE: 20150406
